FAERS Safety Report 16447103 (Version 1)
Quarter: 2019Q2

REPORT INFORMATION
  Report Type: Spontaneous
  Country: US (occurrence: US)
  Receive Date: 20190618
  Receipt Date: 20190618
  Transmission Date: 20190711
  Serious: No
  Sender: FDA-Public Use
  Company Number: US-INTERSECT ENT, INC.-2069348

PATIENT
  Age: 52 Year
  Sex: Male
  Weight: 83.18 kg

DRUGS (1)
  1. SINUVA [Suspect]
     Active Substance: MOMETASONE FUROATE
     Indication: NASAL POLYPS
     Route: 006
     Dates: start: 20181219

REACTIONS (2)
  - Device dislocation [Unknown]
  - Accidental device ingestion [Unknown]

NARRATIVE: CASE EVENT DATE: 20190314
